FAERS Safety Report 8541951 (Version 2)
Quarter: 2013Q2

REPORT INFORMATION
  Report Type: Spontaneous
  Country: DZ (occurrence: None)
  Receive Date: 20120425
  Receipt Date: 20130501
  Transmission Date: 20140414
  Serious: Yes (Death)
  Sender: FDA-Public Use
  Company Number: 2012DZ0132

PATIENT
  Age: 1 Year
  Sex: Male

DRUGS (6)
  1. ORFADIN [Suspect]
     Indication: TYROSINAEMIA
     Dosage: 1.63 MG/KG (5 MG,3 IN 1 D)
     Route: 048
     Dates: start: 201110
  2. LASILIX (FUROSEMIDE) [Concomitant]
  3. ALDACTONE [Concomitant]
  4. VITAMIN K [Concomitant]
  5. VITAMIN D [Concomitant]
  6. VITAMIN A, D, E, K COMPLEX(VITAMIN A, D, E, K COMPLEX) [Concomitant]

REACTIONS (1)
  - Death [None]
